FAERS Safety Report 14602336 (Version 1)
Quarter: 2018Q1

REPORT INFORMATION
  Report Type: Spontaneous
  Country: US (occurrence: US)
  Receive Date: 20180306
  Receipt Date: 20180306
  Transmission Date: 20180509
  Serious: Yes (Death, Other)
  Sender: FDA-Public Use
  Company Number: US-AUROBINDO-AUR-APL-2018-009808

PATIENT

DRUGS (4)
  1. METRONIDAZOLE. [Suspect]
     Active Substance: METRONIDAZOLE
  2. METHOTREXATE. [Suspect]
     Active Substance: METHOTREXATE
     Indication: CHEMOTHERAPY
  3. RUXOLITINIB [Suspect]
     Active Substance: RUXOLITINIB
     Indication: CHEMOTHERAPY
  4. CYTARABINE. [Suspect]
     Active Substance: CYTARABINE
     Indication: CHEMOTHERAPY

REACTIONS (4)
  - Trichosporon infection [Fatal]
  - Fungaemia [Fatal]
  - Febrile neutropenia [Unknown]
  - Rash morbilliform [Unknown]
